FAERS Safety Report 11203470 (Version 1)
Quarter: 2015Q2

REPORT INFORMATION
  Report Type: Spontaneous
  Country: US (occurrence: US)
  Receive Date: 20150619
  Receipt Date: 20150619
  Transmission Date: 20150821
  Serious: Yes (Other)
  Sender: FDA-Public Use
  Company Number: US-ELI_LILLY_AND_COMPANY-US200706001033

PATIENT
  Sex: Male

DRUGS (5)
  1. ZYPREXA [Suspect]
     Active Substance: OLANZAPINE
     Dosage: 20 MG, EACH EVENING
     Route: 048
     Dates: start: 20010426, end: 200707
  2. ZYPREXA [Suspect]
     Active Substance: OLANZAPINE
     Indication: SCHIZOAFFECTIVE DISORDER
     Dosage: 15 MG, EACH EVENING
     Route: 048
     Dates: start: 20010315
  3. ZOLOFT [Concomitant]
     Active Substance: SERTRALINE HYDROCHLORIDE
     Dosage: 100 MG, QD
     Route: 048
  4. ZYPREXA [Suspect]
     Active Substance: OLANZAPINE
     Indication: DEPRESSION
     Dosage: 10 MG, EACH EVENING
     Route: 048
     Dates: start: 20001224
  5. RISPERDAL [Concomitant]
     Active Substance: RISPERIDONE
     Dosage: 1 MG, EACH EVENING
     Route: 065

REACTIONS (16)
  - Heart rate increased [Unknown]
  - Tremor [Unknown]
  - Visual impairment [Unknown]
  - Weight increased [Unknown]
  - Irritability [Unknown]
  - Drug ineffective [Unknown]
  - Myalgia [Unknown]
  - Anger [Unknown]
  - Delusion [Unknown]
  - Hallucination, auditory [Recovering/Resolving]
  - Type 2 diabetes mellitus [Not Recovered/Not Resolved]
  - Pollakiuria [Unknown]
  - Fear [Unknown]
  - Loss of consciousness [Unknown]
  - Muscle disorder [Unknown]
  - Psychotic disorder [Unknown]
